FAERS Safety Report 4741641-1 (Version None)
Quarter: 2005Q3

REPORT INFORMATION
  Report Type: 
  Country: None (occurrence: None)
  Receive Date: 20050801
  Receipt Date: 20050625
  Transmission Date: 20060218
  Serious: No
  Sender: FDA-Public Use
  Company Number: 2005PV000145

PATIENT
  Age: 58 Year
  Sex: Female
  Weight: 90.7194 kg

DRUGS (11)
  1. BYETTA [Suspect]
     Indication: DIABETES MELLITUS NON-INSULIN-DEPENDENT
     Dosage: 5 UG; BID; SC
     Route: 058
     Dates: start: 20050625
  2. METFORMIN [Concomitant]
  3. ACTOS [Concomitant]
  4. PRANDIN [Concomitant]
  5. SYNTHROID [Concomitant]
  6. ZOCOR [Concomitant]
  7. COZAAR [Concomitant]
  8. FLAX SEED OIL [Concomitant]
  9. ASPIRIN [Concomitant]
  10. CALCIUM GLUCONATE [Concomitant]
  11. RELIV NUTRITIONAL SUPPLEMENT [Concomitant]

REACTIONS (2)
  - NAUSEA [None]
  - VOMITING [None]
